FAERS Safety Report 5989735-7 (Version None)
Quarter: 2008Q4

REPORT INFORMATION
  Report Type: 
  Country: None (occurrence: None)
  Receive Date: 20081208
  Receipt Date: 20081125
  Transmission Date: 20090506
  Serious: Yes (Life-Threatening)
  Sender: FDA-Public Use
  Company Number: 20673

PATIENT
  Sex: Female

DRUGS (5)
  1. ANZATAX [Suspect]
     Dosage: 175 MG/M2 IV
     Route: 042
     Dates: start: 20081124, end: 20081124
  2. RANIDIL [Concomitant]
  3. TRIMETON [Concomitant]
  4. DESAMETASONE FOSFATO [Concomitant]
  5. ZOFRAN [Concomitant]

REACTIONS (6)
  - BACK PAIN [None]
  - BLOOD PRESSURE INCREASED [None]
  - EPIGASTRIC DISCOMFORT [None]
  - INFUSION RELATED REACTION [None]
  - PAIN IN EXTREMITY [None]
  - RASH ERYTHEMATOUS [None]
